FAERS Safety Report 4647740-7 (Version None)
Quarter: 2005Q2

REPORT INFORMATION
  Report Type: 
  Country: None (occurrence: None)
  Receive Date: 20050426
  Receipt Date: 20050412
  Transmission Date: 20051028
  Serious: Yes (Death, Other)
  Sender: FDA-Public Use
  Company Number: WAES 0504USA02168

PATIENT
  Age: 77 Year
  Sex: Male

DRUGS (4)
  1. DECADRON [Suspect]
     Indication: MULTIPLE MYELOMA
     Dosage: 40 MG/DAILY
  2. THALIDOMIDE [Suspect]
     Indication: MULTIPLE MYELOMA
     Dosage: 100 MG/DAILY
     Route: 048
  3. MELPHALAN [Concomitant]
  4. PREDNISOLONE [Concomitant]

REACTIONS (3)
  - COMA [None]
  - HAEMOGLOBIN DECREASED [None]
  - RENAL FAILURE [None]
